FAERS Safety Report 19570134 (Version 1)
Quarter: 2021Q3

REPORT INFORMATION
  Report Type: Spontaneous
  Country: CA (occurrence: CA)
  Receive Date: 20210715
  Receipt Date: 20210715
  Transmission Date: 20211014
  Serious: Yes (Hospitalization, Other)
  Sender: FDA-Public Use
  Company Number: CA-ASTRAZENECA-2020SE72374

PATIENT
  Sex: Male
  Weight: 85 kg

DRUGS (13)
  1. OLANZAPINE. [Concomitant]
     Active Substance: OLANZAPINE
     Indication: PSYCHOTIC DISORDER
  2. GEMFIBROZIL. [Concomitant]
     Active Substance: GEMFIBROZIL
  3. QUETIAPINE FUMARATE. [Interacting]
     Active Substance: QUETIAPINE FUMARATE
     Indication: PSYCHOTIC DISORDER
     Dosage: THE PATIENT RECEIVED A 200 MG DOSE OF ORAL AS?NEEDED QUETIAPINE, IN ADDITION TO HIS SCHEDULED 700...
     Route: 048
  4. CLOZAPINE. [Concomitant]
     Active Substance: CLOZAPINE
  5. TEMAZEPAM. [Concomitant]
     Active Substance: TEMAZEPAM
     Indication: SEIZURE
  6. CARBAMAZEPINE. [Interacting]
     Active Substance: CARBAMAZEPINE
     Indication: SEIZURE
     Route: 048
  7. VALPROIC ACID. [Interacting]
     Active Substance: VALPROIC ACID
     Indication: SEIZURE
     Route: 065
  8. DIAZEPAM. [Interacting]
     Active Substance: DIAZEPAM
     Indication: SEIZURE
     Route: 065
  9. PROPRANOLOL [Concomitant]
     Active Substance: PROPRANOLOL HYDROCHLORIDE
     Indication: HYPERTENSION
  10. QUETIAPINE FUMARATE. [Suspect]
     Active Substance: QUETIAPINE FUMARATE
     Indication: PSYCHOTIC DISORDER
     Route: 048
  11. OLANZAPINE. [Concomitant]
     Active Substance: OLANZAPINE
     Indication: PSYCHOTIC DISORDER
  12. PHENYTOIN. [Interacting]
     Active Substance: PHENYTOIN
     Indication: SEIZURE
     Route: 048
  13. VALPROIC ACID. [Interacting]
     Active Substance: VALPROIC ACID
     Indication: SEIZURE
     Route: 065

REACTIONS (5)
  - Akathisia [Recovered/Resolved]
  - Drug interaction [Unknown]
  - Tremor [Not Recovered/Not Resolved]
  - Drug level below therapeutic [Unknown]
  - Drug hypersensitivity [Unknown]
